FAERS Safety Report 17284755 (Version 2)
Quarter: 2020Q1

REPORT INFORMATION
  Report Type: Report from Study
  Country: IT (occurrence: IT)
  Receive Date: 20200117
  Receipt Date: 20200303
  Transmission Date: 20200409
  Serious: Yes (Other)
  Sender: FDA-Public Use
  Company Number: IT-INCYTE CORPORATION-2018IN011799

PATIENT

DRUGS (5)
  1. JAKAVI [Suspect]
     Active Substance: RUXOLITINIB
     Dosage: 30 OT, QD
     Route: 065
     Dates: start: 20180912, end: 20190717
  2. JAKAVI [Suspect]
     Active Substance: RUXOLITINIB
     Dosage: 15 OT, QD
     Route: 065
     Dates: start: 20180726, end: 20180911
  3. JAKAVI [Suspect]
     Active Substance: RUXOLITINIB
     Indication: MYELOFIBROSIS
     Dosage: 30 OT
     Route: 065
     Dates: start: 20180509, end: 20180725
  4. JAKAVI [Suspect]
     Active Substance: RUXOLITINIB
     Dosage: 15 OT
     Route: 065
     Dates: start: 20190718, end: 20190910
  5. JAKAVI [Suspect]
     Active Substance: RUXOLITINIB
     Dosage: 30 OT
     Route: 065
     Dates: start: 20190911

REACTIONS (7)
  - Dyspepsia [Unknown]
  - Pancytopenia [Recovered/Resolved]
  - Pruritus [Unknown]
  - Arthralgia [Unknown]
  - Bone pain [Unknown]
  - Night sweats [Unknown]
  - Asthenia [Unknown]

NARRATIVE: CASE EVENT DATE: 20180813
